FAERS Safety Report 11038225 (Version 10)
Quarter: 2016Q3

REPORT INFORMATION
  Report Type: Spontaneous
  Country: BR (occurrence: BR)
  Receive Date: 20150416
  Receipt Date: 20160809
  Transmission Date: 20161109
  Serious: Yes (Hospitalization, Other)
  Sender: FDA-Public Use
  Company Number: BR-PFIZER INC-2014333468

PATIENT
  Age: 64 Year
  Sex: Male
  Weight: 68 kg

DRUGS (11)
  1. SUTENT [Suspect]
     Active Substance: SUNITINIB MALATE
     Dosage: 50 MG, ONCE PER DAY, CYCLE 4 PER 2
     Route: 048
     Dates: start: 20150211, end: 20150330
  2. SUTENT [Suspect]
     Active Substance: SUNITINIB MALATE
     Dosage: 50 MG DAILY, CYCLIC (CYCLE 2 PER 2)
     Route: 048
     Dates: end: 201602
  3. BROMOPRIDE [Concomitant]
     Active Substance: BROMOPRIDE
     Dosage: 10 MG, 3X/DAY (EVERY 8 HOURS)
     Dates: start: 20150115
  4. SUTENT [Suspect]
     Active Substance: SUNITINIB MALATE
     Indication: METASTATIC RENAL CELL CARCINOMA
     Dosage: UNSPECIFIED DOSE, TWO WEEKS OF USE AND ONE OF BREAK
     Dates: start: 201309
  5. SUTENT [Suspect]
     Active Substance: SUNITINIB MALATE
     Dosage: 50 MG DAILY, CYCLE 2 PER 2
     Route: 048
     Dates: start: 20140916
  6. LOSARTAN POTASSIUM. [Concomitant]
     Active Substance: LOSARTAN POTASSIUM
     Dosage: UNK, 2X/DAY (MORNING AND AT NIGHT)
     Dates: start: 2013
  7. SUTENT [Suspect]
     Active Substance: SUNITINIB MALATE
     Dosage: 50 MG, CYCLIC (2 PER 1)
     Route: 048
     Dates: start: 2015, end: 201507
  8. AMLODIPINE BESILATE [Concomitant]
     Active Substance: AMLODIPINE BESYLATE
     Dosage: UNK, 2X/DAY (MORNING AND AT NIGHT)
     Dates: start: 2013
  9. SUTENT [Suspect]
     Active Substance: SUNITINIB MALATE
     Dosage: UNSPECIFIED DOSE, ONE WEEK YES AND ONE WEEK NO
     Dates: start: 201510
  10. CENTRUM A TO ZINC [Concomitant]
     Dosage: UNK
     Dates: end: 20150330
  11. ONCICREM A [Concomitant]
     Dosage: UNK

REACTIONS (48)
  - Generalised erythema [Recovered/Resolved]
  - Peripheral swelling [Recovered/Resolved]
  - Disease progression [Recovered/Resolved]
  - Decreased appetite [Not Recovered/Not Resolved]
  - Syncope [Recovered/Resolved]
  - Weight decreased [Unknown]
  - Skin discolouration [Unknown]
  - Abasia [Not Recovered/Not Resolved]
  - Genital swelling [Recovered/Resolved]
  - Diarrhoea [Unknown]
  - Malaise [Unknown]
  - Skin exfoliation [Recovered/Resolved]
  - Pain in extremity [Recovered/Resolved]
  - Yellow skin [Not Recovered/Not Resolved]
  - Insomnia [Not Recovered/Not Resolved]
  - Pain [Not Recovered/Not Resolved]
  - Nasal discomfort [Unknown]
  - Wheelchair user [Not Recovered/Not Resolved]
  - Tongue injury [Not Recovered/Not Resolved]
  - Burning sensation [Unknown]
  - Blood pressure increased [Recovered/Resolved]
  - Feeling hot [Not Recovered/Not Resolved]
  - Dizziness [Recovered/Resolved]
  - Oral pain [Recovered/Resolved]
  - Platelet count decreased [Unknown]
  - Tremor [Recovered/Resolved]
  - Skin wound [Not Recovered/Not Resolved]
  - Swelling [Recovered/Resolved]
  - Metastatic renal cell carcinoma [Recovered/Resolved]
  - Limb injury [Not Recovered/Not Resolved]
  - Fall [Recovered/Resolved]
  - Gastric disorder [Unknown]
  - Heart rate increased [Recovered/Resolved]
  - Headache [Not Recovered/Not Resolved]
  - Abdominal distension [Unknown]
  - Tongue exfoliation [Unknown]
  - Oral pain [Unknown]
  - Skin hypertrophy [Not Recovered/Not Resolved]
  - Pallor [Not Recovered/Not Resolved]
  - Mouth injury [Not Recovered/Not Resolved]
  - Product use issue [Not Recovered/Not Resolved]
  - Skin exfoliation [Unknown]
  - Feeling cold [Recovered/Resolved]
  - Hyperkeratosis [Recovered/Resolved]
  - Blister [Not Recovered/Not Resolved]
  - Genital erythema [Not Recovered/Not Resolved]
  - Hypotension [Not Recovered/Not Resolved]
  - Anaemia [Not Recovered/Not Resolved]

NARRATIVE: CASE EVENT DATE: 201411
